FAERS Safety Report 14156058 (Version 2)
Quarter: 2017Q4

REPORT INFORMATION
  Report Type: Spontaneous
  Country: US (occurrence: US)
  Receive Date: 20171103
  Receipt Date: 20171116
  Transmission Date: 20180321
  Serious: No
  Sender: FDA-Public Use
  Company Number: US-HORIZON-DUE-0198-2017

PATIENT
  Age: 35 Year
  Sex: Male
  Weight: 204 kg

DRUGS (1)
  1. DUEXIS [Suspect]
     Active Substance: FAMOTIDINE\IBUPROFEN
     Indication: BACK PAIN
     Dosage: DUEXIS WAS PRESCRIBED 1 TABLET AS NEEDED ORALLY UP TO 3 TIMES DAILY
     Route: 048

REACTIONS (2)
  - Rash [Unknown]
  - Off label use [Unknown]
